FAERS Safety Report 10736843 (Version 1)
Quarter: 2015Q1

REPORT INFORMATION
  Report Type: Spontaneous
  Country: US (occurrence: None)
  Receive Date: 20150122
  Receipt Date: 20150122
  Transmission Date: 20150721
  Serious: No
  Sender: FDA-Public Use
  Company Number: None

PATIENT
  Age: 32 Year
  Sex: Male
  Weight: 90.1 kg

DRUGS (1)
  1. GABAPENTIN. [Suspect]
     Active Substance: GABAPENTIN
     Indication: PAIN
     Route: 048
     Dates: start: 20140717, end: 20140730

REACTIONS (5)
  - Asthenia [None]
  - Agitation [None]
  - Tremor [None]
  - Lethargy [None]
  - Nervousness [None]

NARRATIVE: CASE EVENT DATE: 20140730
